FAERS Safety Report 14391903 (Version 2)
Quarter: 2018Q1

REPORT INFORMATION
  Report Type: Spontaneous
  Country: IN (occurrence: IN)
  Receive Date: 20180116
  Receipt Date: 20180124
  Transmission Date: 20180509
  Serious: Yes (Other)
  Sender: FDA-Public Use
  Company Number: IN-PFIZER INC-2018019373

PATIENT
  Sex: Female

DRUGS (15)
  1. ECOSPRIN AV 75 [Concomitant]
     Dosage: 75 MG, UNK
  2. AROMASIN [Suspect]
     Active Substance: EXEMESTANE
     Indication: INVASIVE DUCTAL BREAST CARCINOMA
     Dosage: 25 MG, UNK
     Route: 048
     Dates: start: 20140613
  3. SHELCAL [Concomitant]
     Dosage: 500 MG, UNK
  4. GABAPIN [Concomitant]
     Active Substance: GABAPENTIN
     Dosage: 300 UNK, UNK
  5. NEBICARD [Concomitant]
     Active Substance: NEBIVOLOL HYDROCHLORIDE
     Dosage: 2.5 UNK, UNK
  6. AMLONG [Concomitant]
     Dosage: 2.5 MG, UNK
  7. ECOSPRIN AV 75 [Concomitant]
     Dosage: 75 MG, UNK
  8. SHELCAL [Concomitant]
     Dosage: 500 UNK, UNK
  9. VELGUT [Concomitant]
     Dosage: UNK
  10. GABAPIN [Concomitant]
     Active Substance: GABAPENTIN
     Dosage: 100 MG, UNK
  11. ODIMONT [Concomitant]
     Dosage: UNK
  12. METFORMIN HYDROCHLORIDE. [Concomitant]
     Active Substance: METFORMIN HYDROCHLORIDE
     Dosage: 250 MG, UNK
  13. METFORMIN HYDROCHLORIDE. [Concomitant]
     Active Substance: METFORMIN HYDROCHLORIDE
     Dosage: 250 UNK, UNK
  14. GABAPIN [Concomitant]
     Active Substance: GABAPENTIN
     Dosage: 100 UNK, UNK
  15. NEBICARD [Concomitant]
     Active Substance: NEBIVOLOL HYDROCHLORIDE
     Dosage: 2.5 MG, UNK

REACTIONS (3)
  - Thyroid disorder [Unknown]
  - Diabetes mellitus [Unknown]
  - Hypertension [Unknown]
